FAERS Safety Report 6809616-6 (Version None)
Quarter: 2010Q2

REPORT INFORMATION
  Report Type: 
  Country: None (occurrence: None)
  Receive Date: 20100630
  Receipt Date: 20100623
  Transmission Date: 20101027
  Serious: Yes (Other)
  Sender: FDA-Public Use
  Company Number: US-SANOFI-AVENTIS-2010SA036812

PATIENT
  Age: 55 Year
  Sex: Female

DRUGS (2)
  1. LANTUS [Suspect]
     Dosage: 80 AND 20 UNITS
     Route: 058
  2. SOLOSTAR [Suspect]
     Dates: start: 20080101

REACTIONS (1)
  - BLINDNESS [None]
